FAERS Safety Report 25892117 (Version 2)
Quarter: 2025Q4

REPORT INFORMATION
  Report Type: Spontaneous
  Country: CH (occurrence: CH)
  Receive Date: 20251007
  Receipt Date: 20251009
  Transmission Date: 20260118
  Serious: Yes (Life-Threatening, Other)
  Sender: PFIZER
  Company Number: None

PATIENT
  Age: 85 Year
  Sex: Female
  Weight: 42 kg

DRUGS (18)
  1. KETALAR [Suspect]
     Active Substance: KETAMINE HYDROCHLORIDE
     Indication: Pain
     Dosage: 10 MG, SINGLE (FLOW1 ML/MIN)
     Route: 042
     Dates: start: 20250831, end: 20250831
  2. KETALAR [Suspect]
     Active Substance: KETAMINE HYDROCHLORIDE
     Dosage: 10 MG, SINGLE (FLOW1 ML/MIN)
     Route: 042
     Dates: start: 20250831, end: 20250831
  3. FENTANYL [Suspect]
     Active Substance: FENTANYL
     Indication: Pain
     Dosage: 50 UG, SINGLE (FLOW1 ML/MIN)
     Route: 042
     Dates: start: 20250831, end: 20250831
  4. FENTANYL [Suspect]
     Active Substance: FENTANYL
     Dosage: 50 UG, SINGLE (FLOW1 ML/MIN)
     Route: 042
     Dates: start: 20250831, end: 20250831
  5. FENTANYL [Suspect]
     Active Substance: FENTANYL
     Dosage: 25 UG, SINGLE (FLOW0.5 ML/MIN)
     Route: 042
     Dates: start: 20250831, end: 20250831
  6. DUPHALAC [Concomitant]
     Active Substance: LACTULOSE
     Dosage: 15 ML, 1X/DAY
  7. TOUJEO [Concomitant]
     Active Substance: INSULIN GLARGINE
     Dosage: 14 IU, 1X/DAY
  8. CANDESARTAN [Concomitant]
     Active Substance: CANDESARTAN
     Dosage: 8 MG, 1X/DAY
  9. METOPROLOL [Concomitant]
     Active Substance: METOPROLOL
     Dosage: 150 MG, 1X/DAY
  10. HUMALOG KWIKPEN [Concomitant]
     Active Substance: INSULIN LISPRO
     Dosage: ACCORDING TO THE SCHEMA
  11. ATORVASTATIN [Concomitant]
     Active Substance: ATORVASTATIN
     Dosage: 10 MG, 1X/DAY
  12. ELIQUIS [Concomitant]
     Active Substance: APIXABAN
     Dosage: 2.5 MG, 2X/DAY (EVERY 12 HOURS)
  13. FERROUS SULFATE [Concomitant]
     Active Substance: FERROUS SULFATE
     Dosage: 80 MG, 1X/DAY
  14. TORSEMIDE [Concomitant]
     Active Substance: TORSEMIDE
     Dosage: 20 MG, 1X/DAY
  15. DAPAGLIFLOZIN [Concomitant]
     Active Substance: DAPAGLIFLOZIN
     Dosage: 5 MG, 1X/DAY
  16. ESCITALOPRAM [Concomitant]
     Active Substance: ESCITALOPRAM OXALATE
  17. CALCIUM CARBONATE\CHOLECALCIFEROL [Concomitant]
     Active Substance: CALCIUM CARBONATE\CHOLECALCIFEROL
     Dosage: 1 DF, 1X/DAY
  18. CLOMETHIAZOLE EDISYLATE [Concomitant]
     Active Substance: CLOMETHIAZOLE EDISYLATE
     Dosage: 192 MG, 1X/DAY

REACTIONS (3)
  - Respiratory depression [Recovered/Resolved]
  - Bradypnoea [Recovered/Resolved]
  - Vomiting [Recovered/Resolved]

NARRATIVE: CASE EVENT DATE: 20250831
